FAERS Safety Report 7874639-5 (Version None)
Quarter: 2011Q4

REPORT INFORMATION
  Report Type: 
  Country: None (occurrence: None)
  Receive Date: 20111031
  Receipt Date: 20111020
  Transmission Date: 20120403
  Serious: No
  Sender: FDA-Public Use
  Company Number: JP-JNJFOC-20111003942

PATIENT

DRUGS (2)
  1. FENTANYL-100 [Suspect]
     Indication: PRODUCT USED FOR UNKNOWN INDICATION
     Route: 062
  2. ANTIEMETIC [Concomitant]
     Route: 065

REACTIONS (3)
  - NAUSEA [None]
  - DRUG TOLERANCE [None]
  - WRONG TECHNIQUE IN DRUG USAGE PROCESS [None]
